FAERS Safety Report 9639984 (Version 2)
Quarter: 2013Q4

REPORT INFORMATION
  Report Type: Spontaneous
  Country: GR (occurrence: GR)
  Receive Date: 20131023
  Receipt Date: 20131115
  Transmission Date: 20140711
  Serious: Yes (Life-Threatening, Other)
  Sender: FDA-Public Use
  Company Number: GR-009507513-1310GRC007734

PATIENT
  Age: 80 Year
  Sex: Male

DRUGS (1)
  1. BCG LIVE [Suspect]
     Indication: BLADDER TRANSITIONAL CELL CARCINOMA
     Dosage: UNK

REACTIONS (7)
  - Hepatic failure [Unknown]
  - Respiratory failure [Unknown]
  - Jaundice [Unknown]
  - Mycobacterial infection [Unknown]
  - Granulomatous liver disease [Unknown]
  - Sepsis [Unknown]
  - Pneumonitis [Unknown]
